FAERS Safety Report 20076421 (Version 2)
Quarter: 2021Q4

REPORT INFORMATION
  Report Type: Report from Study
  Country: US (occurrence: US)
  Receive Date: 20211116
  Receipt Date: 20211209
  Transmission Date: 20220304
  Serious: Yes (Hospitalization)
  Sender: FDA-Public Use
  Company Number: US-GLAXOSMITHKLINE-US2021GSK230287

PATIENT
  Age: 69 Year
  Sex: Female
  Weight: 61.7 kg

DRUGS (22)
  1. DOSTARLIMAB [Suspect]
     Active Substance: DOSTARLIMAB
     Indication: Breast cancer
     Dosage: 500 MG, Q3W
     Route: 042
     Dates: start: 20210927, end: 20210927
  2. DOSTARLIMAB [Suspect]
     Active Substance: DOSTARLIMAB
     Dosage: UNK
     Route: 042
     Dates: start: 20211008, end: 20211008
  3. DOSTARLIMAB [Suspect]
     Active Substance: DOSTARLIMAB
     Dosage: 500 MG, Q3W
     Route: 042
     Dates: start: 20211104, end: 20211104
  4. PACLITAXEL [Suspect]
     Active Substance: PACLITAXEL
     Indication: Breast cancer
     Dosage: 330 MG/15 MG, 3 TIMES WEEKLY
     Route: 048
     Dates: start: 20210927
  5. ENCEQUIDAR MESYLATE MONOHYDRATE [Suspect]
     Active Substance: ENCEQUIDAR MESYLATE MONOHYDRATE
     Dosage: UNK
     Route: 048
     Dates: start: 20211102
  6. ZOFRAN [Concomitant]
     Active Substance: ONDANSETRON HYDROCHLORIDE
     Indication: Nausea
     Dosage: 8 MG, TID
     Route: 048
     Dates: start: 20210927
  7. ZOFRAN [Concomitant]
     Active Substance: ONDANSETRON HYDROCHLORIDE
     Indication: Vomiting
  8. ZOVIRAX (ACYCLOVIR) [Concomitant]
     Indication: Product used for unknown indication
     Dosage: 400 MG
     Route: 048
     Dates: start: 20210907
  9. WELLBUTRIN SR (BUPROPION) [Concomitant]
     Indication: Product used for unknown indication
     Dosage: 200 MG, BID
     Route: 048
     Dates: start: 20210831
  10. CONCERTA [Concomitant]
     Active Substance: METHYLPHENIDATE HYDROCHLORIDE
     Indication: Product used for unknown indication
     Dosage: 54 MG, QD
     Route: 048
  11. PEPCID [Concomitant]
     Active Substance: FAMOTIDINE
     Indication: Product used for unknown indication
     Dosage: 40 MG, EVERY EVENING
     Route: 048
     Dates: start: 20211102
  12. FISH OIL (OMEGA - 3 FATTY ACIDS) [Concomitant]
     Indication: Product used for unknown indication
     Dosage: 360-1200 MG
     Route: 048
  13. AMBIEN CR (ZOLPIDEM) [Concomitant]
     Indication: Product used for unknown indication
     Dosage: 6.25 MG, PRN
     Route: 048
  14. EMLA [Concomitant]
     Active Substance: LIDOCAINE\PRILOCAINE
     Indication: Product used for unknown indication
     Dosage: APPLY ON PORT SITE
     Dates: start: 20210924
  15. COMPAZINE [Concomitant]
     Active Substance: PROCHLORPERAZINE MALEATE
     Indication: Nausea
     Dosage: 10 MG, EVERY 6 HOURS
     Route: 048
  16. COMPAZINE [Concomitant]
     Active Substance: PROCHLORPERAZINE MALEATE
     Indication: Vomiting
  17. RITALIN [Concomitant]
     Active Substance: METHYLPHENIDATE HYDROCHLORIDE
     Indication: Product used for unknown indication
     Dosage: 5 MG
  18. SODIUM CHLORIDE [Concomitant]
     Active Substance: SODIUM CHLORIDE
     Indication: Product used for unknown indication
     Dosage: 3 ML, TID
     Route: 042
  19. SODIUM CHLORIDE [Concomitant]
     Active Substance: SODIUM CHLORIDE
     Dosage: 3 ML, PRN
     Route: 042
  20. CALCIUM CARBONATE-VITAMIN D3 (OSCAL D) [Concomitant]
     Indication: Product used for unknown indication
     Dosage: 1250 MG, BID WITH MEALS
     Route: 048
  21. ENOXAPARIN [Concomitant]
     Active Substance: ENOXAPARIN
     Indication: Product used for unknown indication
     Dosage: 40 MG, QD
     Route: 058
  22. ONDANSETRON [Concomitant]
     Active Substance: ONDANSETRON
     Indication: Product used for unknown indication
     Dosage: 4 MG, PRN (Q6H)
     Route: 042

REACTIONS (1)
  - Enteritis [Not Recovered/Not Resolved]

NARRATIVE: CASE EVENT DATE: 20211103
